FAERS Safety Report 9138143 (Version 1)
Quarter: 2013Q1

REPORT INFORMATION
  Report Type: Spontaneous
  Country: CA (occurrence: CA)
  Receive Date: 20130304
  Receipt Date: 20130304
  Transmission Date: 20140127
  Serious: Yes (Other)
  Sender: FDA-Public Use
  Company Number: CA-BAUSCH-BL-2012-002250

PATIENT
  Age: 41 None
  Sex: Male

DRUGS (6)
  1. BESIVANCE (BESIFLOXACIN OPHTHALMIC SUSPENSION) 0.6% [Suspect]
     Indication: POSTOPERATIVE CARE
     Dosage: DROPS; OPHTHALMIC
     Route: 047
  2. LOTEMAX (LOTEPREDNOL ETABONATE OPHTHALMIC SUSPENSION 0.5%) [Suspect]
     Indication: POSTOPERATIVE CARE
     Dosage: DROPS; OPHTHALMIC
     Route: 047
  3. LOTEMAX (LOTEPREDNOL ETABONATE OPHTHALMIC SUSPENSION 0.5%) [Suspect]
     Route: 047
     Dates: start: 20121122
  4. LIPOSIC OPHTHALMIC DROPS [Suspect]
     Indication: POSTOPERATIVE CARE
     Dosage: DROP, OPHTHALMIC
     Route: 047
  5. PROXYMETACAINE [Concomitant]
     Dates: start: 20121108, end: 20121108
  6. BSS [Concomitant]
     Dates: start: 20121108, end: 20121108

REACTIONS (11)
  - Corneal striae [Unknown]
  - Corneal deposits [Recovered/Resolved]
  - Diffuse lamellar keratitis [Recovered/Resolved]
  - Corneal opacity [Recovered/Resolved]
  - Corneal flap complication [Recovered/Resolved]
  - Corneal infiltrates [Not Recovered/Not Resolved]
  - Foreign body sensation in eyes [Recovered/Resolved]
  - Medication residue present [Recovered/Resolved]
  - Corneal oedema [Recovered/Resolved]
  - Photophobia [Not Recovered/Not Resolved]
  - Off label use [Unknown]
